FAERS Safety Report 5012824-0 (Version None)
Quarter: 2006Q2

REPORT INFORMATION
  Report Type: 
  Country: None (occurrence: None)
  Receive Date: 20060530
  Receipt Date: 20060405
  Transmission Date: 20061013
  Serious: No
  Sender: FDA-Public Use
  Company Number: US-BRISTOL-MYERS SQUIBB COMPANY-13337548

PATIENT
  Age: 58 Year
  Sex: Male
  Weight: 76 kg

DRUGS (3)
  1. ERBITUX [Suspect]
     Route: 042
     Dates: start: 20060405, end: 20060405
  2. IRINOTECAN HCL [Concomitant]
  3. BENADRYL [Concomitant]
     Indication: PREMEDICATION
     Dates: start: 20060405, end: 20060405

REACTIONS (2)
  - DRUG ADMINISTRATION ERROR [None]
  - NO ADVERSE EFFECT [None]
